FAERS Safety Report 21208327 (Version 1)
Quarter: 2022Q3

REPORT INFORMATION
  Report Type: Spontaneous
  Country: IR (occurrence: IR)
  Receive Date: 20220812
  Receipt Date: 20220812
  Transmission Date: 20221027
  Serious: Yes (Life-Threatening, Other)
  Sender: FDA-Public Use
  Company Number: IR-NOVARTISPH-NVSC2022IR178772

PATIENT
  Age: 4 Year
  Sex: Male

DRUGS (15)
  1. CYTARABINE [Suspect]
     Active Substance: CYTARABINE
     Indication: Acute myeloid leukaemia
     Dosage: 200 MG/M2, QD (ON DAYS 1, 2, 3, 4)
     Route: 042
  2. CYTARABINE [Suspect]
     Active Substance: CYTARABINE
     Dosage: UNK (BASED ON AGE ADJUSTED)
     Route: 042
  3. CYTARABINE [Suspect]
     Active Substance: CYTARABINE
     Dosage: 100 MG/M2, QD (ON DAYS 1, 2, 3, 4, 5)
     Route: 042
  4. CYTARABINE [Suspect]
     Active Substance: CYTARABINE
     Dosage: TRIPLE INTRATHECAL INJECTION SIMILAR TO THE FIRST
     Route: 042
  5. CYTARABINE [Suspect]
     Active Substance: CYTARABINE
     Dosage: 2 G/M2 EVERY 12 HOURS AS A 2-HOUR, ON DAYS 1, 2, 3 (A TOTAL OF SIX DOSES
     Route: 042
  6. MITOXANTRONE [Suspect]
     Active Substance: MITOXANTRONE HYDROCHLORIDE
     Indication: Acute myeloid leukaemia
     Dosage: 10 MG/M2 (AS A 30-MINUTE IV INFUSION ON DAYS 1, 2, 3)
     Route: 042
  7. ETOPOSIDE [Suspect]
     Active Substance: ETOPOSIDE
     Indication: Acute myeloid leukaemia
     Dosage: 100 MG/M2, QD (WITH CONTINUOUSIV INFUSION ON DAYS 1, 2, 3, 4)
     Route: 042
  8. ETOPOSIDE [Suspect]
     Active Substance: ETOPOSIDE
     Dosage: 100 MG/M2, QD (WITH 60 MINUTE IV INFUSION ON DAYS 2, 3, 4, 5)
     Route: 042
  9. METHOTREXATE [Suspect]
     Active Substance: METHOTREXATE
     Indication: Acute myeloid leukaemia
     Dosage: UNK
     Route: 065
  10. METHOTREXATE [Suspect]
     Active Substance: METHOTREXATE
     Dosage: UNK
     Route: 065
  11. METHOTREXATE [Suspect]
     Active Substance: METHOTREXATE
     Dosage: UNK
     Route: 065
  12. THIOGUANINE [Suspect]
     Active Substance: THIOGUANINE
     Indication: Acute myeloid leukaemia
     Dosage: 100 MG/M2, Q12H (ON DAYS 1, 2, 3, 4)
     Route: 048
  13. IDARUBICIN [Suspect]
     Active Substance: IDARUBICIN
     Indication: Acute myeloid leukaemia
     Dosage: 12 MG/M2 ((AS A 4-HOUR IV INFUSION ON DAYS 2, 4, 6)
     Route: 042
  14. HYDROCORTISONE [Suspect]
     Active Substance: HYDROCORTISONE
     Indication: Acute myeloid leukaemia
     Dosage: UNK
     Route: 065
  15. HYDROCORTISONE [Suspect]
     Active Substance: HYDROCORTISONE
     Dosage: UNK
     Route: 065

REACTIONS (8)
  - Venoocclusive liver disease [Unknown]
  - Liver injury [Unknown]
  - Ascites [Unknown]
  - Bilirubin conjugated increased [Unknown]
  - Oedema [Unknown]
  - Pericardial effusion [Unknown]
  - Thrombocytopenia [Unknown]
  - Respiratory distress [Unknown]
